FAERS Safety Report 8434403-5 (Version None)
Quarter: 2012Q2

REPORT INFORMATION
  Report Type: 
  Country: None (occurrence: None)
  Receive Date: 20120613
  Receipt Date: 20120611
  Transmission Date: 20120825
  Serious: Yes (Other)
  Sender: FDA-Public Use
  Company Number: US-AMGEN-USASP2012011429

PATIENT
  Age: 59 Year
  Sex: Female
  Weight: 76.19 kg

DRUGS (1)
  1. PROLIA [Suspect]
     Indication: OSTEOPOROSIS
     Dosage: 60 MG, UNK
     Route: 058
     Dates: start: 20111222

REACTIONS (16)
  - OSTEOPOROSIS POSTMENOPAUSAL [None]
  - ABNORMAL WEIGHT GAIN [None]
  - MALAISE [None]
  - OSTEONECROSIS OF JAW [None]
  - HYPERLIPIDAEMIA [None]
  - ANDROGEN DEFICIENCY [None]
  - MOUTH ULCERATION [None]
  - DEPRESSION [None]
  - ACNE [None]
  - SECONDARY SEQUESTRUM [None]
  - FATIGUE [None]
  - STOMATITIS [None]
  - VITAMIN D DEFICIENCY [None]
  - ACUTE SINUSITIS [None]
  - COLITIS ULCERATIVE [None]
  - ANXIETY [None]
